FAERS Safety Report 24547380 (Version 2)
Quarter: 2025Q3

REPORT INFORMATION
  Report Type: Report from Study
  Country: US (occurrence: US)
  Receive Date: 20241025
  Receipt Date: 20250810
  Transmission Date: 20251020
  Serious: Yes (Other)
  Sender: ALEXION PHARMACEUTICALS
  Company Number: US-ALXN-202410USA014857US

PATIENT

DRUGS (1)
  1. STRENSIQ [Suspect]
     Active Substance: ASFOTASE ALFA
     Route: 065

REACTIONS (19)
  - Vitreous detachment [Unknown]
  - Blood cholesterol increased [Unknown]
  - High density lipoprotein decreased [Unknown]
  - Blood triglycerides increased [Unknown]
  - Low density lipoprotein increased [Unknown]
  - Total cholesterol/HDL ratio increased [Unknown]
  - Non-high-density lipoprotein cholesterol increased [Unknown]
  - Blood glucose increased [Unknown]
  - Glycosylated haemoglobin increased [Unknown]
  - Head discomfort [Unknown]
  - Vitreous floaters [Unknown]
  - Oedema peripheral [Unknown]
  - Hypotension [Unknown]
  - Fatigue [Unknown]
  - Rhinitis allergic [Unknown]
  - Arthralgia [Recovered/Resolved]
  - Axillary pain [Recovered/Resolved]
  - Tremor [Unknown]
  - Head titubation [Unknown]

NARRATIVE: CASE EVENT DATE: 20231201
